FAERS Safety Report 12004585 (Version 1)
Quarter: 2016Q1

REPORT INFORMATION
  Report Type: Report from Study
  Country: US (occurrence: US)
  Receive Date: 20160204
  Receipt Date: 20160204
  Transmission Date: 20160526
  Serious: No
  Sender: FDA-Public Use
  Company Number: US-ABBVIE-15K-163-1437283-00

PATIENT
  Age: 43 Year
  Sex: Female

DRUGS (1)
  1. HUMIRA [Suspect]
     Active Substance: ADALIMUMAB
     Indication: RHEUMATOID ARTHRITIS
     Route: 065
     Dates: start: 20150716

REACTIONS (11)
  - Rash [Not Recovered/Not Resolved]
  - Pruritus [Unknown]
  - Feeling hot [Not Recovered/Not Resolved]
  - Respiratory tract congestion [Unknown]
  - Pain in extremity [Not Recovered/Not Resolved]
  - Muscle strain [Unknown]
  - Hyperhidrosis [Not Recovered/Not Resolved]
  - Nasopharyngitis [Not Recovered/Not Resolved]
  - Urticaria [Not Recovered/Not Resolved]
  - Gait disturbance [Unknown]
  - Erythema [Unknown]

NARRATIVE: CASE EVENT DATE: 201507
